FAERS Safety Report 7964333-4 (Version None)
Quarter: 2011Q4

REPORT INFORMATION
  Report Type: 
  Country: None (occurrence: None)
  Receive Date: 20111208
  Receipt Date: 20111129
  Transmission Date: 20120403
  Serious: Yes (Other)
  Sender: FDA-Public Use
  Company Number: GB-JNJFOC-20111202784

PATIENT
  Sex: Male

DRUGS (2)
  1. HEPARIN [Concomitant]
  2. XARELTO [Suspect]
     Indication: KNEE ARTHROPLASTY
     Route: 065

REACTIONS (1)
  - HALLUCINATION [None]
